FAERS Safety Report 16420260 (Version 2)
Quarter: 2019Q3

REPORT INFORMATION
  Report Type: Spontaneous
  Country: US (occurrence: US)
  Receive Date: 20190612
  Receipt Date: 20190715
  Transmission Date: 20191004
  Serious: No
  Sender: FDA-Public Use
  Company Number: US-PFIZER INC-2019250823

PATIENT
  Age: 75 Year
  Sex: Female
  Weight: 77.98 kg

DRUGS (4)
  1. DILTIAZEM HCL [Suspect]
     Active Substance: DILTIAZEM HYDROCHLORIDE
     Dosage: UNK
  2. OPSUMIT [Suspect]
     Active Substance: MACITENTAN
     Dosage: UNK
  3. TYVASO [Suspect]
     Active Substance: TREPROSTINIL
     Indication: PULMONARY ARTERIAL HYPERTENSION
     Dosage: UNK, 4X/DAY (3-9 BREATHS INHALED)
     Dates: start: 20190502
  4. TYVASO [Suspect]
     Active Substance: TREPROSTINIL
     Dosage: UNK [3 BREATHS PER TREATMENT]

REACTIONS (3)
  - Flushing [Recovered/Resolved]
  - Sensation of foreign body [Recovered/Resolved]
  - Hypotension [Recovered/Resolved]
